FAERS Safety Report 8547872-7 (Version None)
Quarter: 2012Q3

REPORT INFORMATION
  Report Type: 
  Country: None (occurrence: None)
  Receive Date: 20120727
  Receipt Date: 20110926
  Transmission Date: 20120928
  Serious: No
  Sender: FDA-Public Use
  Company Number: US-ASTRAZENECA-2011SE48892

PATIENT
  Age: 55 Year
  Sex: Male

DRUGS (2)
  1. SEROQUEL [Suspect]
     Route: 048
  2. SEROQUEL [Suspect]
     Indication: DEPRESSION
     Route: 048

REACTIONS (6)
  - AMNESIA [None]
  - NASOPHARYNGITIS [None]
  - SOMNOLENCE [None]
  - DRUG EFFECT DECREASED [None]
  - DYSPHONIA [None]
  - APHONIA [None]
